FAERS Safety Report 9922185 (Version 1)
Quarter: 2014Q1

REPORT INFORMATION
  Report Type: Spontaneous
  Country: US (occurrence: US)
  Receive Date: 20140225
  Receipt Date: 20140225
  Transmission Date: 20141002
  Serious: Yes (Disabling, Other)
  Sender: FDA-Public Use
  Company Number: US-BAYER-2014-023605

PATIENT
  Age: 28 Year
  Sex: Male

DRUGS (3)
  1. CIPRO [Suspect]
     Indication: PROSTATITIS
     Dosage: 500 MG
     Dates: start: 201002
  2. CIPRO [Suspect]
     Indication: PROSTATITIS
     Dosage: 500 MG, UNK
     Dates: start: 201004
  3. CIPRO [Suspect]
     Indication: PROSTATITIS
     Dosage: 500 MG, UNK
     Dates: end: 201206

REACTIONS (4)
  - Tendon rupture [Unknown]
  - Musculoskeletal stiffness [Unknown]
  - Tendon pain [Unknown]
  - Tendon disorder [Unknown]
